FAERS Safety Report 6770956-0 (Version None)
Quarter: 2010Q2

REPORT INFORMATION
  Report Type: 
  Country: None (occurrence: None)
  Receive Date: 20100616
  Receipt Date: 20100607
  Transmission Date: 20101027
  Serious: Yes (Hospitalization)
  Sender: FDA-Public Use
  Company Number: US-BIOGENIDEC-2010BI017120

PATIENT
  Age: 54 Year
  Sex: Female

DRUGS (12)
  1. TYSABRI [Suspect]
     Indication: MULTIPLE SCLEROSIS
     Route: 042
     Dates: start: 20080331
  2. ATENOLOL [Concomitant]
     Route: 048
  3. METFORMIN HCL [Concomitant]
  4. HYDRALAZINE HCL [Concomitant]
     Route: 048
  5. ASPIRIN [Concomitant]
     Route: 048
  6. RESTORIL [Concomitant]
     Route: 048
  7. LOVAZA [Concomitant]
  8. MICARDIS / HYDROCHLOROTHIAZIDE 80 [Concomitant]
     Route: 048
  9. FAMOTIDINE [Concomitant]
  10. REMERON [Concomitant]
     Route: 048
  11. LIPITOR [Concomitant]
     Route: 048
  12. MULTI-VITAMIN [Concomitant]

REACTIONS (1)
  - BRONCHITIS [None]
